FAERS Safety Report 15954443 (Version 1)
Quarter: 2019Q1

REPORT INFORMATION
  Report Type: Spontaneous
  Country: US (occurrence: US)
  Receive Date: 20190212
  Receipt Date: 20190212
  Transmission Date: 20190417
  Serious: Yes (Hospitalization)
  Sender: FDA-Public Use
  Company Number: US-VERTEX PHARMACEUTICALS-2019-001222

PATIENT
  Age: 53 Year
  Sex: Female

DRUGS (18)
  1. TRAZODONE [Concomitant]
     Active Substance: TRAZODONE HYDROCHLORIDE
  2. URSODIOL. [Concomitant]
     Active Substance: URSODIOL
  3. FLUCONAZOLE. [Concomitant]
     Active Substance: FLUCONAZOLE
  4. PAROXETINE. [Concomitant]
     Active Substance: PAROXETINE
  5. RANITIDINE. [Concomitant]
     Active Substance: RANITIDINE
  6. HYPERSAL [Concomitant]
  7. SYMDEKO [Suspect]
     Active Substance: IVACAFTOR\TEZACAFTOR
     Indication: CYSTIC FIBROSIS
     Dosage: 100 MG TEZACAFTOR/ 150 MG IVACAFTOR AM; 150 MG IVACAFTOR PM
     Route: 048
     Dates: start: 20180929
  8. ZENPEP [Concomitant]
     Active Substance: PANCRELIPASE AMYLASE\PANCRELIPASE LIPASE\PANCRELIPASE PROTEASE
  9. HUMALOG [Concomitant]
     Active Substance: INSULIN LISPRO
  10. HYDROXYCHLOROQUINE [Concomitant]
     Active Substance: HYDROXYCHLOROQUINE
  11. FOLIC ACID. [Concomitant]
     Active Substance: FOLIC ACID
  12. MIRTAZAPINE. [Concomitant]
     Active Substance: MIRTAZAPINE
  13. VALACYCLOVIR                       /01269701/ [Concomitant]
     Active Substance: VALACYCLOVIR HYDROCHLORIDE
  14. CAYSTON [Concomitant]
     Active Substance: AZTREONAM
  15. LANTUS [Concomitant]
     Active Substance: INSULIN GLARGINE
  16. DRONABINOL. [Concomitant]
     Active Substance: DRONABINOL
  17. METHOTREXATE. [Concomitant]
     Active Substance: METHOTREXATE
  18. PROAIR HFA [Concomitant]
     Active Substance: ALBUTEROL SULFATE

REACTIONS (1)
  - Lung infection [Unknown]

NARRATIVE: CASE EVENT DATE: 20190127
